FAERS Safety Report 25269074 (Version 1)
Quarter: 2025Q2

REPORT INFORMATION
  Report Type: Spontaneous
  Country: TW (occurrence: TW)
  Receive Date: 20250505
  Receipt Date: 20250505
  Transmission Date: 20250716
  Serious: Yes (Other)
  Sender: PFIZER
  Company Number: TW-PFIZER INC-PV202500052002

PATIENT
  Age: 63 Year
  Sex: Male

DRUGS (14)
  1. VFEND [Suspect]
     Active Substance: VORICONAZOLE
     Indication: Aspergillus infection
     Dosage: 200 MG, 2X/DAY (EVERY 12 HOURS)
     Route: 048
     Dates: start: 20240314, end: 20240502
  2. ACTEIN [ACETYLCYSTEINE] [Concomitant]
     Dosage: 600 MG, 1X/DAY
     Route: 048
     Dates: start: 20240326, end: 20240618
  3. CHLORIDE SODIUM [Concomitant]
     Dosage: 500 ML, 1X/DAY
     Route: 041
     Dates: start: 20240308, end: 20240315
  4. DAILYCARE ACTIBEST [Concomitant]
     Dosage: 1 TAB, 1X/DAY
     Route: 048
     Dates: start: 20240308, end: 20240618
  5. ACETAMINOPHEN [Concomitant]
     Active Substance: ACETAMINOPHEN
     Route: 048
     Dates: start: 20240308, end: 20240323
  6. HEMOCLOT [TRANEXAMIC ACID] [Concomitant]
     Dosage: 1 DF, 4X/DAY (500MG/5ML 1 AMP EVERY 6 HOURS)
     Route: 042
     Dates: start: 20240308, end: 20240312
  7. HEMOCLOT [TRANEXAMIC ACID] [Concomitant]
     Dosage: 1 DF, 2X/DAY (500MG/5ML 1 AMP EVERY 12 HOURS)
     Route: 042
     Dates: start: 20240312, end: 20240315
  8. DEXTROMETHORPHAN HYDROBROMIDE [Concomitant]
     Active Substance: DEXTROMETHORPHAN HYDROBROMIDE
     Dosage: 30 MG, 3X/DAY (1 TAB AFTER MEALS)
     Route: 048
     Dates: start: 20240308, end: 20240326
  9. OMEZOL [OMEPRAZOLE] [Concomitant]
     Dosage: 20 MG, 1X/DAY (1 CAP BEFORE MEALS)
     Route: 048
     Dates: start: 20240308, end: 20240423
  10. PIPERACILLIN SODIUM\TAZOBACTAM SODIUM [Concomitant]
     Active Substance: PIPERACILLIN SODIUM\TAZOBACTAM SODIUM
     Dosage: 4.5 G, 4X/DAY (EVERY 6 HOURS)
     Route: 042
     Dates: start: 20240313, end: 20240315
  11. PHYTONADIONE [Concomitant]
     Active Substance: PHYTONADIONE
     Route: 042
     Dates: start: 20240308, end: 20240308
  12. PIPERACILLIN SODIUM\TAZOBACTAM SODIUM [Concomitant]
     Active Substance: PIPERACILLIN SODIUM\TAZOBACTAM SODIUM
     Dosage: 4.5 G, 4X/DAY (EVERY 6HOURS)
     Route: 042
     Dates: start: 20240308, end: 20240313
  13. TRAND [Concomitant]
     Route: 048
     Dates: start: 20240316, end: 20240326
  14. VITACIN [ASCORBIC ACID] [Concomitant]
     Dosage: 1 DF, 2X/DAY (100MG/2ML 1 AMP EVERY 12 HOURS)
     Route: 042
     Dates: start: 20240308, end: 20240312

REACTIONS (3)
  - Rash [Recovered/Resolved]
  - Rash maculo-papular [Recovering/Resolving]
  - Mucosal inflammation [Recovering/Resolving]

NARRATIVE: CASE EVENT DATE: 20240502
